FAERS Safety Report 6083355-4 (Version None)
Quarter: 2009Q1

REPORT INFORMATION
  Report Type: 
  Country: None (occurrence: None)
  Receive Date: 20090217
  Receipt Date: 20090204
  Transmission Date: 20090719
  Serious: Yes (Death, Life-Threatening, Hospitalization, Disabling, Other)
  Sender: FDA-Public Use
  Company Number: CLOF-1000290

PATIENT
  Age: 10 Year
  Sex: Male
  Weight: 44 kg

DRUGS (12)
  1. CLOLAR [Suspect]
     Indication: ACUTE MYELOID LEUKAEMIA
     Dosage: 73 MG, ONCE; INTRAVENOUS; 36.5 MG, QD; INTRAVENOUS
     Route: 042
     Dates: start: 20080909, end: 20080909
  2. CLOLAR [Suspect]
     Indication: ACUTE MYELOID LEUKAEMIA
     Dosage: 73 MG, ONCE; INTRAVENOUS; 36.5 MG, QD; INTRAVENOUS
     Route: 042
     Dates: start: 20080917, end: 20080918
  3. CYTARABINE [Suspect]
     Indication: ACUTE MYELOID LEUKAEMIA
     Dosage: 1 G/M2, QD; INTRAVENOUS; 1 G/M2, QDX3; INTRAVENOUS
     Route: 042
     Dates: start: 20080909, end: 20080909
  4. CYTARABINE [Suspect]
     Indication: ACUTE MYELOID LEUKAEMIA
     Dosage: 1 G/M2, QD; INTRAVENOUS; 1 G/M2, QDX3; INTRAVENOUS
     Route: 042
     Dates: start: 20080918, end: 20080920
  5. DAUNORUBICIN HCL [Suspect]
     Indication: ACUTE MYELOID LEUKAEMIA
     Dosage: INTRAVENOUS
     Route: 042
  6. ETOPOSIDE [Suspect]
     Indication: ACUTE MYELOID LEUKAEMIA
  7. METHYLPREDNISOLONE 4MG TAB [Concomitant]
  8. ALLOPURINOL [Concomitant]
  9. CEFEPIME [Concomitant]
  10. PERIDEX (CHLORHEXIDINE GLUCONATE) [Concomitant]
  11. MORPHINE [Concomitant]
  12. ACETAMINOPHEN [Concomitant]

REACTIONS (36)
  - CAECITIS [None]
  - CANDIDIASIS [None]
  - CARDIAC FAILURE [None]
  - CHLOROMA [None]
  - CIRCULATORY COLLAPSE [None]
  - COAGULOPATHY [None]
  - CONJUNCTIVAL HAEMORRHAGE [None]
  - CONTUSION [None]
  - CONVULSION [None]
  - CYSTITIS HAEMORRHAGIC [None]
  - CYTOKINE STORM [None]
  - ENCEPHALOPATHY [None]
  - EYE MOVEMENT DISORDER [None]
  - FUNGAEMIA [None]
  - HAEMODIALYSIS [None]
  - HAEMORRHAGE INTRACRANIAL [None]
  - HEMIPARESIS [None]
  - HEPATIC FAILURE [None]
  - HEPATOTOXICITY [None]
  - HYPOTENSION [None]
  - INTERNATIONAL NORMALISED RATIO INCREASED [None]
  - KUSSMAUL RESPIRATION [None]
  - LIVER INJURY [None]
  - METABOLIC ACIDOSIS [None]
  - MULTI-ORGAN FAILURE [None]
  - NEUTROPHIL COUNT DECREASED [None]
  - OPTIC NERVE SHEATH HAEMORRHAGE [None]
  - PRURITUS [None]
  - RENAL FAILURE ACUTE [None]
  - RESPIRATORY DISORDER [None]
  - RESPIRATORY DISTRESS [None]
  - RESPIRATORY FAILURE [None]
  - RETINAL HAEMORRHAGE [None]
  - SEPSIS [None]
  - SYSTEMIC INFLAMMATORY RESPONSE SYNDROME [None]
  - TUMOUR LYSIS SYNDROME [None]
